FAERS Safety Report 10091375 (Version 1)
Quarter: 2014Q2

REPORT INFORMATION
  Report Type: Report from Study
  Country: BR (occurrence: BR)
  Receive Date: 20140421
  Receipt Date: 20140421
  Transmission Date: 20141212
  Serious: Yes (Other)
  Sender: FDA-Public Use
  Company Number: PHHY2014BR046847

PATIENT
  Sex: Male
  Weight: 66 kg

DRUGS (3)
  1. DIOVAN [Suspect]
     Indication: HYPERTENSION
     Dosage: 1 DF (320 MG), DAILY
     Route: 048
  2. HYDROCHLOROTHIAZIDE [Suspect]
     Indication: HYPERTENSION
     Dosage: 1 DF (25MG) DAILY
     Dates: start: 2012
  3. LOTAR [Suspect]
     Indication: HYPERTENSION
     Dosage: 1 DF (LOSA 100MG, AMLO 5MG) DAILY
     Route: 048

REACTIONS (4)
  - Intervertebral disc protrusion [Unknown]
  - Anxiety [Unknown]
  - Hypertension [Unknown]
  - Back pain [Unknown]
